FAERS Safety Report 14426873 (Version 2)
Quarter: 2018Q1

REPORT INFORMATION
  Report Type: Report from Study
  Country: JP (occurrence: JP)
  Receive Date: 20180123
  Receipt Date: 20180216
  Transmission Date: 20180509
  Serious: Yes (Other)
  Sender: FDA-Public Use
  Company Number: JP-TEVA-2018-JP-848552

PATIENT
  Age: 38 Year
  Sex: Female

DRUGS (2)
  1. LUTEUM VAGINAL SUPPOSITORY 400MG [Suspect]
     Active Substance: PROGESTERONE
     Indication: PROGESTIN REPLACEMENT THERAPY
     Dosage: 800 MILLIGRAM DAILY;
     Route: 067
     Dates: start: 20160929, end: 20161103
  2. PREDONINE [Concomitant]
     Active Substance: PREDNISOLONE
     Dosage: 5 MILLIGRAM DAILY;
     Route: 048
     Dates: start: 20160929, end: 20161103

REACTIONS (1)
  - Foetal death [Unknown]

NARRATIVE: CASE EVENT DATE: 201611
